FAERS Safety Report 15230260 (Version 1)
Quarter: 2018Q3

REPORT INFORMATION
  Report Type: Spontaneous
  Country: DE (occurrence: DE)
  Receive Date: 20180802
  Receipt Date: 20180802
  Transmission Date: 20181010
  Serious: Yes (Hospitalization)
  Sender: FDA-Public Use
  Company Number: DE-TEVA-2018-DE-933563

PATIENT
  Age: 56 Year
  Sex: Female
  Weight: 60 kg

DRUGS (2)
  1. CEFUROXIM [Concomitant]
     Active Substance: CEFUROXIME
     Dosage: 2250 MILLIGRAM DAILY;
     Route: 048
     Dates: start: 20180420, end: 20180518
  2. MINOCYCLINE [Suspect]
     Active Substance: MINOCYCLINE\MINOCYCLINE HYDROCHLORIDE
     Indication: LYME DISEASE
     Dosage: 200 MILLIGRAM DAILY;
     Route: 048
     Dates: start: 20180420, end: 20180518

REACTIONS (8)
  - Arthralgia [Recovering/Resolving]
  - Pleural effusion [Recovering/Resolving]
  - Hepatitis [Recovering/Resolving]
  - Drug reaction with eosinophilia and systemic symptoms [Recovering/Resolving]
  - Polyarthritis [Recovering/Resolving]
  - Respiratory failure [Recovering/Resolving]
  - Urticaria [Recovering/Resolving]
  - Eosinophilic pneumonia [Recovering/Resolving]

NARRATIVE: CASE EVENT DATE: 20180509
